FAERS Safety Report 20965339 (Version 1)
Quarter: 2022Q2

REPORT INFORMATION
  Report Type: Spontaneous
  Country: MA (occurrence: MA)
  Receive Date: 20220616
  Receipt Date: 20220616
  Transmission Date: 20220720
  Serious: Yes (Other)
  Sender: FDA-Public Use
  Company Number: MA-009507513-2206MAR003173

PATIENT
  Age: 28 Year
  Sex: Female

DRUGS (3)
  1. IMIPENEM AND CILASTATIN [Suspect]
     Active Substance: CILASTATIN SODIUM\IMIPENEM
     Indication: Antibiotic therapy
     Dosage: 500 MILLIGRAM/D
  2. UNSPECIFIED INGREDIENT [Concomitant]
     Active Substance: UNSPECIFIED INGREDIENT
     Indication: Antibiotic therapy
  3. AMIKACIN [Concomitant]
     Active Substance: AMIKACIN
     Indication: Antibiotic therapy
     Dosage: 15 MILLIGRAM/KILOGRAM/D

REACTIONS (3)
  - Pathogen resistance [Unknown]
  - Product use issue [Unknown]
  - Off label use [Unknown]
